FAERS Safety Report 13597062 (Version 1)
Quarter: 2017Q2

REPORT INFORMATION
  Report Type: Spontaneous
  Country: US (occurrence: US)
  Receive Date: 20170530
  Receipt Date: 20170530
  Transmission Date: 20170830
  Serious: No
  Sender: FDA-Public Use
  Company Number: None

PATIENT
  Age: 76 Year
  Sex: Male
  Weight: 85.28 kg

DRUGS (2)
  1. EMPAGLIFLOZIN [Suspect]
     Active Substance: EMPAGLIFLOZIN
     Indication: DIABETES MELLITUS
     Dosage: 12.5 MG AM  PO
     Route: 048
     Dates: start: 20170202, end: 20170403
  2. EMPAGLIFLOZIN [Suspect]
     Active Substance: EMPAGLIFLOZIN
     Indication: CORONARY ARTERY BYPASS
     Dosage: 12.5 MG AM  PO
     Route: 048
     Dates: start: 20170202, end: 20170403

REACTIONS (1)
  - Dizziness [None]

NARRATIVE: CASE EVENT DATE: 20170413
